FAERS Safety Report 18936070 (Version 1)
Quarter: 2021Q1

REPORT INFORMATION
  Report Type: Other
  Country: US (occurrence: US)
  Receive Date: 20210225
  Receipt Date: 20210225
  Transmission Date: 20210420
  Serious: No
  Sender: FDA-Public Use
  Company Number: US-TENSHI KAIZEN PRIVATE LIMITED-2107311

PATIENT

DRUGS (2)
  1. LORATADINE ORALLY DISINTEGRATING TABLETS USP, 10 MG (OTC) (ANDA 213294 [Suspect]
     Active Substance: LORATADINE
     Indication: PRODUCT USED FOR UNKNOWN INDICATION
     Route: 063
  2. CETIRIZINE [Suspect]
     Active Substance: CETIRIZINE HYDROCHLORIDE
     Route: 063

REACTIONS (1)
  - Exposure via breast milk [Unknown]
